FAERS Safety Report 24897471 (Version 1)
Quarter: 2025Q1

REPORT INFORMATION
  Report Type: Spontaneous
  Country: TR (occurrence: TR)
  Receive Date: 20250129
  Receipt Date: 20250129
  Transmission Date: 20250408
  Serious: Yes (Hospitalization, Other)
  Sender: ALEXION PHARMACEUTICALS
  Company Number: TR-ASTRAZENECA-202501TUR021993TR

PATIENT

DRUGS (1)
  1. NEXIUM [Suspect]
     Active Substance: ESOMEPRAZOLE MAGNESIUM
     Indication: Colitis

REACTIONS (6)
  - Asthenia [Unknown]
  - Irritability [Unknown]
  - Muscle spasms [Unknown]
  - Arthralgia [Unknown]
  - Myalgia [Unknown]
  - Genital haemorrhage [Unknown]
